FAERS Safety Report 5808807 (Version 6)
Quarter: 2013Q2

REPORT INFORMATION
  Report Type: Spontaneous
  Country: US (occurrence: US)
  Receive Date: 20050531
  Receipt Date: 20130410
  Transmission Date: 20140414
  Serious: Yes (Death, Hospitalization, Other)
  Sender: FDA-Public Use
  Company Number: US-JNJFOC-20050507147

PATIENT
  Age: 37 Year
  Sex: Female
  Weight: 68.04 kg

DRUGS (27)
  1. MOTRIN 800 MG [Suspect]
     Indication: PRODUCT USED FOR UNKNOWN INDICATION
     Dosage: 800 MG, TWICE TO THREE TIMES, AS NEEDED
     Dates: start: 20020819, end: 200211
  2. NORTRIPTYLINE HYDROCHLORIDE [Suspect]
     Indication: SUICIDE ATTEMPT
  3. AMITRIPTYLINE HYDROCHLORIDE [Suspect]
     Indication: SUICIDE ATTEMPT
  4. VENLAFAXINE [Suspect]
     Indication: SUICIDE ATTEMPT
  5. NEURONTIN [Suspect]
     Indication: PAIN
     Dates: start: 20011025
  6. NEURONTIN [Suspect]
     Indication: PAIN
     Dates: start: 199512
  7. NEURONTIN [Suspect]
     Indication: PAIN
     Dates: start: 20021016
  8. NEURONTIN [Suspect]
     Indication: MOVEMENT DISORDER
     Dates: start: 199512
  9. NEURONTIN [Suspect]
     Indication: MOVEMENT DISORDER
     Dates: start: 20021016
  10. NEURONTIN [Suspect]
     Indication: MOVEMENT DISORDER
     Dates: start: 20011025
  11. NEURONTIN [Suspect]
     Indication: ALCOHOLIC SEIZURE
     Dates: start: 199512
  12. NEURONTIN [Suspect]
     Indication: ALCOHOLIC SEIZURE
     Dates: start: 20021016
  13. NEURONTIN [Suspect]
     Indication: ALCOHOLIC SEIZURE
     Dates: start: 20011025
  14. NEURONTIN [Suspect]
     Indication: BIPOLAR DISORDER
     Dates: start: 20021016
  15. NEURONTIN [Suspect]
     Indication: BIPOLAR DISORDER
     Dates: start: 199512
  16. NEURONTIN [Suspect]
     Indication: BIPOLAR DISORDER
     Dates: start: 20011025
  17. OXYCODONE [Suspect]
     Indication: PRODUCT USED FOR UNKNOWN INDICATION
  18. BUSPIRONE [Concomitant]
     Route: 048
  19. OXAZEPAM [Concomitant]
  20. BENZODIAZEPINE DERIVATIVES [Concomitant]
  21. OPIOIDS [Concomitant]
  22. BISOPROLOL FUMARATE/HYDROCHLOROTHIAZIDE [Concomitant]
     Route: 065
  23. VERAPAMIL [Concomitant]
     Route: 048
  24. ALBUTEROL [Concomitant]
     Route: 055
  25. SUMATRIPTAN [Concomitant]
     Route: 065
  26. TEMAZEPAM [Concomitant]
     Route: 048
  27. LIDOCAINE [Concomitant]
     Route: 062

REACTIONS (14)
  - Completed suicide [Fatal]
  - Overdose [Fatal]
  - Loss of consciousness [Recovered/Resolved]
  - Cardiac arrest [Unknown]
  - Suicidal ideation [Unknown]
  - Homicidal ideation [Unknown]
  - Major depression [Unknown]
  - Consciousness fluctuating [Unknown]
  - Intentional drug misuse [Unknown]
  - Drug ineffective [Unknown]
  - Laceration [Unknown]
  - Contusion [Unknown]
  - Confusional state [Unknown]
  - Swelling [Unknown]
